FAERS Safety Report 7620123-3 (Version None)
Quarter: 2011Q3

REPORT INFORMATION
  Report Type: 
  Country: None (occurrence: None)
  Receive Date: 20110719
  Receipt Date: 20110714
  Transmission Date: 20111222
  Serious: Yes (Other)
  Sender: FDA-Public Use
  Company Number: US-PFIZER INC-2011100824

PATIENT
  Sex: Male

DRUGS (4)
  1. CHANTIX [Suspect]
     Dosage: UNK, CONTINUING PACK
     Dates: start: 20091028, end: 20091101
  2. DICLOFENAC [Concomitant]
     Indication: ARTHRITIS
     Dosage: UNK
     Dates: start: 20060101
  3. VIAGRA [Concomitant]
     Indication: ERECTILE DYSFUNCTION
     Dosage: UNK
     Dates: start: 20060101, end: 20090101
  4. CHANTIX [Suspect]
     Indication: SMOKING CESSATION THERAPY
     Dosage: UNK, STARTING PACK
     Dates: start: 20070901, end: 20080111

REACTIONS (4)
  - SUICIDAL IDEATION [None]
  - DEPRESSION [None]
  - INSOMNIA [None]
  - ANXIETY [None]
